FAERS Safety Report 5127894-9 (Version None)
Quarter: 2006Q4

REPORT INFORMATION
  Report Type: 
  Country: None (occurrence: None)
  Receive Date: 20061011
  Receipt Date: 20060926
  Transmission Date: 20070319
  Serious: Yes (Hospitalization, Other)
  Sender: FDA-Public Use
  Company Number: 2006AL002977

PATIENT
  Age: 44 Year
  Sex: Male

DRUGS (7)
  1. DICLOFENAC SODIUM [Suspect]
     Indication: SPINAL OSTEOARTHRITIS
     Dosage: 100 MG; BID; PO
     Route: 048
     Dates: end: 20060830
  2. BECLOMETHASONE DIPROPIONATE [Concomitant]
  3. LEVOCETIRIZINE [Concomitant]
  4. METHOCARBAMOL [Concomitant]
  5. RANITIDINE [Concomitant]
  6. SALBUTAMOL [Concomitant]
  7. PAROXETINE HCL [Concomitant]

REACTIONS (2)
  - DUODENAL ULCER HAEMORRHAGE [None]
  - GASTRIC PH DECREASED [None]
